FAERS Safety Report 14706015 (Version 1)
Quarter: 2018Q2

REPORT INFORMATION
  Report Type: Report from Study
  Country: AR (occurrence: AR)
  Receive Date: 20180402
  Receipt Date: 20180402
  Transmission Date: 20180711
  Serious: Yes (Other)
  Sender: FDA-Public Use
  Company Number: PHHY2018AR053009

PATIENT
  Sex: Female

DRUGS (1)
  1. DUOTRAV (ALC) [Suspect]
     Active Substance: TIMOLOL MALEATE\TRAVOPROST
     Indication: GLAUCOMA
     Dosage: 6 YEARS AGO APPROX
     Route: 065

REACTIONS (2)
  - Hypertension [Not Recovered/Not Resolved]
  - Glaucoma [Recovering/Resolving]
